FAERS Safety Report 20070150 (Version 2)
Quarter: 2021Q4

REPORT INFORMATION
  Report Type: Spontaneous
  Country: US (occurrence: US)
  Receive Date: 20211115
  Receipt Date: 20211115
  Transmission Date: 20220303
  Serious: Yes (Hospitalization)
  Sender: FDA-Public Use
  Company Number: US-KARYOPHARM-2021KPT001196

PATIENT

DRUGS (2)
  1. XPOVIO [Suspect]
     Active Substance: SELINEXOR
     Indication: Product used for unknown indication
     Dosage: 20 MG
  2. XPOVIO [Suspect]
     Active Substance: SELINEXOR
     Dosage: 40 MG

REACTIONS (2)
  - Gastrointestinal disorder [Unknown]
  - Dehydration [Unknown]

NARRATIVE: CASE EVENT DATE: 20210901
